FAERS Safety Report 17217138 (Version 1)
Quarter: 2019Q4

REPORT INFORMATION
  Report Type: Spontaneous
  Country: SE (occurrence: SE)
  Receive Date: 20191231
  Receipt Date: 20191231
  Transmission Date: 20200122
  Serious: Yes (Hospitalization)
  Sender: FDA-Public Use
  Company Number: SE-TEVA-2019-SE-1159804

PATIENT
  Sex: Male

DRUGS (2)
  1. PROPAVAN [Suspect]
     Active Substance: PROPIOMAZINE
     Dosage: 50 ST
     Route: 048
     Dates: start: 20190317, end: 20190317
  2. STESOLID [Suspect]
     Active Substance: DIAZEPAM
     Dosage: 100 MG
     Route: 048
     Dates: start: 20190317, end: 20190317

REACTIONS (2)
  - Intentional overdose [Unknown]
  - Suicide attempt [Unknown]

NARRATIVE: CASE EVENT DATE: 20190317
